FAERS Safety Report 4881101-0 (Version None)
Quarter: 2005Q4

REPORT INFORMATION
  Report Type: 
  Country: None (occurrence: None)
  Receive Date: 20051223
  Receipt Date: 20050922
  Transmission Date: 20060501
  Serious: No
  Sender: FDA-Public Use
  Company Number: 05P-163-0311694-00

PATIENT
  Age: 75 Year
  Sex: Female
  Weight: 66.2252 kg

DRUGS (11)
  1. HUMIRA [Suspect]
     Indication: RHEUMATOID ARTHRITIS
     Dosage: 40 MG, 1 IN 2 WK, SUBCUTANEOUS
     Route: 058
     Dates: start: 20050420
  2. PREDNISONE [Concomitant]
  3. HYDROXYCHLOROQUINE PHOSPHATE [Concomitant]
  4. PAROXETINE HYDROCHLORIDE [Concomitant]
  5. AMLODIPINE BESYLATE [Concomitant]
  6. GLIBENCLAMIDE [Concomitant]
  7. METHOTREXATE SODIUM [Concomitant]
  8. METFORMIN HYDROCHLORIDE [Concomitant]
  9. DICLOFENAC SODIUM [Concomitant]
  10. NAPROXEN SODIUM [Concomitant]
  11. ENALATRIL [Concomitant]

REACTIONS (1)
  - WEIGHT INCREASED [None]
